FAERS Safety Report 7520944-1 (Version None)
Quarter: 2011Q2

REPORT INFORMATION
  Report Type: 
  Country: None (occurrence: None)
  Receive Date: 20110603
  Receipt Date: 20101201
  Transmission Date: 20111010
  Serious: Yes (Hospitalization, Disabling)
  Sender: FDA-Public Use
  Company Number: FR-BAYER-2010-000881

PATIENT
  Age: 59 Year
  Sex: Male

DRUGS (1)
  1. LEVITRA [Suspect]
     Route: 048

REACTIONS (1)
  - ISCHAEMIC STROKE [None]
